FAERS Safety Report 26150783 (Version 1)
Quarter: 2025Q4

REPORT INFORMATION
  Report Type: Spontaneous
  Country: US (occurrence: US)
  Receive Date: 20251212
  Receipt Date: 20251212
  Transmission Date: 20260118
  Serious: Yes (Other)
  Sender: CIPLA
  Company Number: US-CIPLA (EU) LIMITED-2025US15539

PATIENT

DRUGS (3)
  1. ALBUTEROL [Suspect]
     Active Substance: ALBUTEROL
     Indication: Asthma
     Dosage: 180 MICROGRAM, BID (2 PUFFS EVERY FOUR HOURS BUT PATIENT ONLY TAKES TWICE A DAY) (THREE INHALERS)
  2. ALBUTEROL [Suspect]
     Active Substance: ALBUTEROL
     Indication: Pneumonia
     Dosage: 180 MICROGRAM, BID (2 PUFFS EVERY FOUR HOURS BUT PATIENT ONLY TAKES TWICE A DAY)
     Dates: start: 20251015, end: 20251015
  3. ALBUTEROL [Suspect]
     Active Substance: ALBUTEROL
     Dosage: 180 MICROGRAM, BID (2 PUFFS EVERY FOUR HOURS BUT PATIENT ONLY TAKES TWICE A DAY) (PREVIOUS INHALER)
     Dates: start: 2025

REACTIONS (6)
  - Cardiac failure congestive [Unknown]
  - Illness [Unknown]
  - Device difficult to use [Unknown]
  - Inappropriate schedule of product administration [Unknown]
  - Product dose omission issue [Unknown]
  - Product quality issue [Unknown]

NARRATIVE: CASE EVENT DATE: 20250101
